FAERS Safety Report 6259437-0 (Version None)
Quarter: 2009Q3

REPORT INFORMATION
  Report Type: 
  Country: None (occurrence: None)
  Receive Date: 20090708
  Receipt Date: 20090630
  Transmission Date: 20100115
  Serious: Yes (Hospitalization)
  Sender: FDA-Public Use
  Company Number: US-BIOGENIDEC-2008BI013887

PATIENT
  Age: 57 Year
  Sex: Female

DRUGS (1)
  1. TYSABRI [Suspect]
     Indication: MULTIPLE SCLEROSIS
     Route: 042
     Dates: start: 20070312, end: 20080414

REACTIONS (4)
  - ANAEMIA [None]
  - CONTUSION [None]
  - FATIGUE [None]
  - IDIOPATHIC THROMBOCYTOPENIC PURPURA [None]
